FAERS Safety Report 8089856-1 (Version None)
Quarter: 2012Q1

REPORT INFORMATION
  Report Type: 
  Country: None (occurrence: None)
  Receive Date: 20120128
  Receipt Date: 20110702
  Transmission Date: 20120608
  Serious: Yes (Hospitalization)
  Sender: FDA-Public Use
  Company Number: US-ABBOTT-11P-163-0836277-00

PATIENT
  Age: 35 Year
  Sex: Female

DRUGS (4)
  1. HUMIRA [Suspect]
     Indication: CROHN'S DISEASE
     Route: 058
     Dates: start: 20101001
  2. LEXAPRO [Concomitant]
     Indication: ANXIETY
  3. HYDROCODONE BITARTRATE [Concomitant]
     Indication: PAIN
     Dosage: 5/325MG PRN
  4. LEXAPRO [Concomitant]
     Indication: DEPRESSION
     Dosage: 50 MG DAILY

REACTIONS (1)
  - COLECTOMY [None]
